FAERS Safety Report 8141271-8 (Version None)
Quarter: 2012Q1

REPORT INFORMATION
  Report Type: 
  Country: None (occurrence: None)
  Receive Date: 20120103
  Receipt Date: 20110919
  Transmission Date: 20120608
  Serious: No
  Sender: FDA-Public Use
  Company Number: AE-2011-001661

PATIENT
  Age: 50 Year
  Sex: Male
  Weight: 103.8737 kg

DRUGS (4)
  1. INCIVEK [Suspect]
     Dosage: 2250 MG (750 MG, 1 IN 8 HR), ORAL
     Route: 048
     Dates: start: 20110801
  2. PEGASYS [Concomitant]
  3. RIBAVIRIN [Concomitant]
  4. FOLIC ACID [Concomitant]

REACTIONS (9)
  - PALPITATIONS [None]
  - DIARRHOEA [None]
  - RESTLESS LEGS SYNDROME [None]
  - NAUSEA [None]
  - DEHYDRATION [None]
  - PAIN [None]
  - HEADACHE [None]
  - AGITATION [None]
  - INSOMNIA [None]
